FAERS Safety Report 4500906-9 (Version None)
Quarter: 2004Q4

REPORT INFORMATION
  Report Type: 
  Country: None (occurrence: None)
  Receive Date: 20041115
  Receipt Date: 20041110
  Transmission Date: 20050328
  Serious: Yes (Death, Hospitalization)
  Sender: FDA-Public Use
  Company Number: PHBS2004US15118

PATIENT
  Age: 13 Year
  Sex: Male

DRUGS (13)
  1. CYCLOSPORINE [Suspect]
     Indication: BONE MARROW TRANSPLANT
     Dosage: UNK, UNK
     Route: 065
  2. CYCLOSPORINE [Suspect]
     Dosage: UNK, UNK
     Route: 065
  3. FLUDARABINE [Concomitant]
     Dosage: 180 MG/M2
  4. BUSULFAN [Concomitant]
     Dosage: 6.4 MG/KG
  5. ATGAM [Concomitant]
  6. ANTITHYMOCYTE IMMUNOGLOBULIN (RABBIT) [Concomitant]
  7. MYCOPHENOLATE MOFETIL [Concomitant]
  8. ACYCLOVIR [Concomitant]
     Route: 048
  9. ITRACONAZOLE [Concomitant]
     Route: 048
  10. VANCOMYCIN [Concomitant]
     Route: 042
  11. CYTOMEGALOVIRUS IMMUNE GLOBULIN [Concomitant]
  12. PREDNISONE [Concomitant]
  13. TACROLIMUS [Concomitant]

REACTIONS (15)
  - BRAIN DEATH [None]
  - CONJUNCTIVITIS [None]
  - ENCEPHALITIS POST MEASLES [None]
  - EYE PAIN [None]
  - GRAFT VERSUS HOST DISEASE [None]
  - HEADACHE [None]
  - LUMBAR PUNCTURE ABNORMAL [None]
  - NEUTROPENIA [None]
  - NUCLEAR MAGNETIC RESONANCE IMAGING ABNORMAL [None]
  - PHOTOPHOBIA [None]
  - PYREXIA [None]
  - RASH ERYTHEMATOUS [None]
  - RASH PRURITIC [None]
  - SIMPLE PARTIAL SEIZURES [None]
  - STATUS EPILEPTICUS [None]
